FAERS Safety Report 25742332 (Version 1)
Quarter: 2025Q3

REPORT INFORMATION
  Report Type: Spontaneous
  Country: EU (occurrence: EU)
  Receive Date: 20250829
  Receipt Date: 20250829
  Transmission Date: 20251020
  Serious: Yes (Hospitalization, Other)
  Sender: INSUD PHARMA
  Company Number: EU-INSUD PHARMA-2508IT07012

PATIENT

DRUGS (3)
  1. BETAMETHASONE [Suspect]
     Active Substance: BETAMETHASONE
     Indication: Pneumonia
     Dosage: 0.1 MILLIGRAM/KILOGRAM, QD
     Route: 048
  2. METHYLPREDNISOLONE [Suspect]
     Active Substance: METHYLPREDNISOLONE
     Indication: Pneumonia
     Dosage: 1 MILLIGRAM/KILOGRAM, QD
     Route: 065
  3. METHYLPREDNISOLONE [Suspect]
     Active Substance: METHYLPREDNISOLONE
     Dosage: 1.5 MILLIGRAM/KILOGRAM, QD
     Route: 065

REACTIONS (2)
  - Hypertrophic cardiomyopathy [Recovered/Resolved]
  - Cardiac murmur [Recovered/Resolved]
